FAERS Safety Report 20878171 (Version 1)
Quarter: 2022Q2

REPORT INFORMATION
  Report Type: Spontaneous
  Country: US (occurrence: None)
  Receive Date: 20220526
  Receipt Date: 20220526
  Transmission Date: 20220721
  Serious: Yes (Hospitalization)
  Sender: FDA-Public Use
  Company Number: None

PATIENT
  Sex: Female

DRUGS (2)
  1. SPRAVATO [Suspect]
     Active Substance: ESKETAMINE
     Indication: Major depression
     Dosage: FREQUENCY : ONCE;?ADMINISTERED 84 MG ONCE A WEEK?
     Route: 045
     Dates: start: 20220315
  2. SPRAVATO [Concomitant]
     Active Substance: ESKETAMINE

REACTIONS (1)
  - Product distribution issue [None]
